FAERS Safety Report 21446673 (Version 1)
Quarter: 2022Q4

REPORT INFORMATION
  Report Type: Spontaneous
  Country: CN (occurrence: None)
  Receive Date: 20221012
  Receipt Date: 20221012
  Transmission Date: 20230112
  Serious: Yes (Death, Life-Threatening, Hospitalization, Other)
  Sender: FDA-Public Use
  Company Number: CN-HQ-20220034

PATIENT
  Age: 61 Year
  Sex: Female
  Weight: 65 kg

DRUGS (6)
  1. METOPROLOL [Concomitant]
     Active Substance: METOPROLOL
  2. MILRINONE [Concomitant]
     Active Substance: MILRINONE
  3. DAPAGLIFLOZIN [Interacting]
     Active Substance: DAPAGLIFLOZIN
     Indication: Type 2 diabetes mellitus
  4. TORSEMIDE [Concomitant]
     Active Substance: TORSEMIDE
     Route: 042
  5. LINEZOLID [Interacting]
     Active Substance: LINEZOLID
     Indication: Enterococcal infection
     Route: 042
  6. VALSARTAN [Concomitant]
     Active Substance: VALSARTAN
     Indication: Hypertension

REACTIONS (2)
  - Drug interaction [Fatal]
  - Myelosuppression [Fatal]
